FAERS Safety Report 6508601-1 (Version None)
Quarter: 2009Q4

REPORT INFORMATION
  Report Type: 
  Country: None (occurrence: None)
  Receive Date: 20091221
  Receipt Date: 20090618
  Transmission Date: 20100525
  Serious: No
  Sender: FDA-Public Use
  Company Number: US-ABBOTT-09P-163-0576967-00

PATIENT
  Sex: Male

DRUGS (3)
  1. NIMBEX [Suspect]
     Indication: SEDATION
     Route: 042
  2. NIMBEX [Suspect]
     Route: 042
  3. NIMBEX [Suspect]
     Route: 042

REACTIONS (1)
  - DRUG INEFFECTIVE [None]
